FAERS Safety Report 14169128 (Version 1)
Quarter: 2017Q4

REPORT INFORMATION
  Report Type: Report from Study
  Country: US (occurrence: US)
  Receive Date: 20171107
  Receipt Date: 20171107
  Transmission Date: 20180321
  Serious: Yes (Hospitalization)
  Sender: FDA-Public Use
  Company Number: US-ACTELION-A-US2016-144903

PATIENT
  Age: 53 Year
  Sex: Female
  Weight: 108.84 kg

DRUGS (4)
  1. VELETRI [Suspect]
     Active Substance: EPOPROSTENOL
     Indication: PULMONARY ARTERIAL HYPERTENSION
     Dosage: 37 NG/KG, PER MIN
     Route: 042
     Dates: start: 20110818
  2. REVATIO [Concomitant]
     Active Substance: SILDENAFIL CITRATE
  3. VELETRI [Suspect]
     Active Substance: EPOPROSTENOL
     Dosage: 43.5 NG/KG, PER MIN
     Route: 042
  4. WARFARIN [Concomitant]
     Active Substance: WARFARIN

REACTIONS (4)
  - Oropharyngeal pain [Unknown]
  - Pain in jaw [Unknown]
  - Unresponsive to stimuli [Unknown]
  - Heart rate increased [Unknown]

NARRATIVE: CASE EVENT DATE: 20161024
